FAERS Safety Report 25274888 (Version 1)
Quarter: 2025Q2

REPORT INFORMATION
  Report Type: Spontaneous
  Country: CA (occurrence: CA)
  Receive Date: 20250506
  Receipt Date: 20250506
  Transmission Date: 20250717
  Serious: Yes (Other)
  Sender: PFIZER
  Company Number: CA-PFIZER INC-202500092000

PATIENT
  Age: 73 Year
  Sex: Male

DRUGS (10)
  1. VYNDAMAX [Suspect]
     Active Substance: TAFAMIDIS
     Indication: Cardiac amyloidosis
     Dosage: 61 MG, 1X/DAY (90 DAYS)
     Route: 048
     Dates: start: 20240213
  2. APIXABAN [Concomitant]
     Active Substance: APIXABAN
     Indication: Atrial fibrillation
     Dosage: 5 MG, 2X/DAY (1 TABLET PO BID X 90 DAYS LU 448)
     Route: 048
  3. ESCITALOPRAM OXALATE [Concomitant]
     Active Substance: ESCITALOPRAM OXALATE
     Dosage: 10 MG, 1X/DAY
  4. EMPAGLIFLOZIN [Concomitant]
     Active Substance: EMPAGLIFLOZIN
     Dosage: 10 MG, 1X/DAY (1 TAB) X 90 DAYS
     Route: 048
  5. FUROSEMIDE SODIUM [Concomitant]
     Active Substance: FUROSEMIDE SODIUM
     Dosage: 40 MG, 1X/DAY (1 TABLET PO OD X 90 DAYS DOSE INCREASE)
     Route: 048
  6. LORAZEPAM [Concomitant]
     Active Substance: LORAZEPAM
     Route: 060
  7. CARBIDOPA AND LEVODOPA [Concomitant]
     Active Substance: CARBIDOPA\LEVODOPA
     Dosage: 100 MG, 2X/DAY (LEVODOPA 100 MG-CARBIDOPA 25 MG TABLET 1 TAB)
     Route: 048
  8. CARBIDOPA AND LEVODOPA [Concomitant]
     Active Substance: CARBIDOPA\LEVODOPA
     Dosage: 100 MG, 2X/DAY (LEVODOPA 100 MG-CARBIDOPA 50 MG TABLET 2 TABS PO BID)
     Route: 048
  9. PRAMIPEXOLE DIHYDROCHLORIDE [Concomitant]
     Active Substance: PRAMIPEXOLE DIHYDROCHLORIDE
     Dosage: 1.5 QID (4 TIME A DAY)
  10. SPIRONOLACTONE [Concomitant]
     Active Substance: SPIRONOLACTONE
     Dosage: 50 MG, 1X/DAY X 90 DAYS DOSE INCREASE
     Route: 048

REACTIONS (5)
  - Parkinson^s disease [Unknown]
  - Weight fluctuation [Unknown]
  - Fatigue [Unknown]
  - Mobility decreased [Unknown]
  - Weight increased [Unknown]
